FAERS Safety Report 18336844 (Version 1)
Quarter: 2020Q4

REPORT INFORMATION
  Report Type: Report from Study
  Country: None (occurrence: US)
  Receive Date: 20201002
  Receipt Date: 20201002
  Transmission Date: 20210113
  Serious: Yes (Hospitalization, Other)
  Sender: FDA-Public Use
  Company Number: US-ABBVIE-20K-163-3387332-00

PATIENT
  Age: 59 Year
  Sex: Female

DRUGS (2)
  1. HUMIRA [Suspect]
     Active Substance: ADALIMUMAB
     Dosage: CITRATE FREE
     Route: 058
  2. HUMIRA [Suspect]
     Active Substance: ADALIMUMAB
     Indication: RHEUMATOID ARTHRITIS
     Dosage: CITRATE FREE
     Route: 058

REACTIONS (15)
  - Blood count abnormal [Recovering/Resolving]
  - Weight decreased [Unknown]
  - Vitamin D deficiency [Unknown]
  - Dehydration [Unknown]
  - Pharyngitis streptococcal [Not Recovered/Not Resolved]
  - Hospitalisation [Unknown]
  - Arthropathy [Unknown]
  - Pulmonary oedema [Unknown]
  - Exostosis [Unknown]
  - Feeling cold [Unknown]
  - Anaemia [Unknown]
  - Gastrointestinal disorder [Recovering/Resolving]
  - Liver disorder [Unknown]
  - Dyspnoea [Not Recovered/Not Resolved]
  - Rheumatoid arthritis [Unknown]

NARRATIVE: CASE EVENT DATE: 2019
